FAERS Safety Report 18250430 (Version 1)
Quarter: 2020Q3

REPORT INFORMATION
  Report Type: Report from Study
  Country: JP (occurrence: JP)
  Receive Date: 20200909
  Receipt Date: 20200909
  Transmission Date: 20201103
  Serious: Yes (Death, Hospitalization)
  Sender: FDA-Public Use
  Company Number: JP-JNJFOC-A-CH2019-193912

PATIENT
  Age: 3 Year
  Sex: Female

DRUGS (12)
  1. MUCOSOLVAN DS [Concomitant]
  2. TAMIFLU [Concomitant]
     Active Substance: OSELTAMIVIR PHOSPHATE
  3. TRACLEER [Suspect]
     Active Substance: BOSENTAN
     Indication: PULMONARY ARTERIAL HYPERTENSION
     Dosage: 8 MG, BID
     Route: 048
     Dates: start: 20170623, end: 20170917
  4. MUCODYNE [Concomitant]
     Active Substance: CARBOCYSTEINE
  5. LASIX [Concomitant]
     Active Substance: FUROSEMIDE
  6. MIYA?BM [Concomitant]
     Active Substance: CLOSTRIDIUM BUTYRICUM SPORES STRAIN M-55
  7. ADCIRCA [Concomitant]
     Active Substance: TADALAFIL
  8. MIKELAN [Concomitant]
     Active Substance: CARTEOLOL HYDROCHLORIDE
  9. PHENOBAL [PHENOBARBITAL] [Concomitant]
     Active Substance: PHENOBARBITAL
     Indication: SEIZURE
     Dosage: 15 MG, BID
     Route: 048
     Dates: start: 20140512, end: 20151125
  10. OXYGEN. [Concomitant]
     Active Substance: OXYGEN
  11. ALDACTONE A [Concomitant]
     Active Substance: SPIRONOLACTONE
  12. OZEX [Concomitant]

REACTIONS (6)
  - Pyrexia [Recovering/Resolving]
  - Diarrhoea [Recovering/Resolving]
  - Oxygen saturation decreased [Recovering/Resolving]
  - Cardiac failure [Fatal]
  - Respiratory tract infection [Fatal]
  - Hepatic function abnormal [Recovered/Resolved]

NARRATIVE: CASE EVENT DATE: 20170917
